FAERS Safety Report 17967652 (Version 2)
Quarter: 2020Q4

REPORT INFORMATION
  Report Type: Spontaneous
  Country: US (occurrence: US)
  Receive Date: 20200701
  Receipt Date: 20201125
  Transmission Date: 20210113
  Serious: No
  Sender: FDA-Public Use
  Company Number: US-PFIZER INC-2017388836

PATIENT
  Age: 65 Year
  Sex: Female
  Weight: 90 kg

DRUGS (3)
  1. DETROL LA [Suspect]
     Active Substance: TOLTERODINE TARTRATE
     Indication: URINARY INCONTINENCE
     Dosage: 4 MG, 1X/DAY
  2. DETROL LA [Suspect]
     Active Substance: TOLTERODINE TARTRATE
     Dosage: 4 MG, 2X/DAY
     Route: 048
  3. DETROL LA [Suspect]
     Active Substance: TOLTERODINE TARTRATE
     Dosage: 4 MG, 2X/DAY
     Route: 048

REACTIONS (2)
  - Prescribed overdose [Unknown]
  - Therapeutic product effect incomplete [Unknown]
